FAERS Safety Report 5283836-7 (Version None)
Quarter: 2007Q2

REPORT INFORMATION
  Report Type: 
  Country: None (occurrence: None)
  Receive Date: 20070402
  Receipt Date: 20070323
  Transmission Date: 20071010
  Serious: Yes (Other)
  Sender: FDA-Public Use
  Company Number: GB-ABBOTT-07P-167-0362959-00

PATIENT
  Age: 45 Year
  Sex: Female

DRUGS (1)
  1. ATRACURIUM BESYLATE [Suspect]
     Indication: GENERAL ANAESTHESIA
     Dosage: NOT REPORTED

REACTIONS (1)
  - ERYTHEMA [None]
